FAERS Safety Report 4622043-5 (Version None)
Quarter: 2005Q1

REPORT INFORMATION
  Report Type: 
  Country: None (occurrence: None)
  Receive Date: 20050328
  Receipt Date: 20050314
  Transmission Date: 20050727
  Serious: Yes (Hospitalization)
  Sender: FDA-Public Use
  Company Number: 213326

PATIENT
  Age: 71 Year
  Sex: Female

DRUGS (1)
  1. RITUXAN [Suspect]
     Indication: IDIOPATHIC THROMBOCYTOPENIC PURPURA
     Dosage: INTRAVENOUS
     Route: 042
     Dates: end: 20041001

REACTIONS (4)
  - ATRIAL FIBRILLATION [None]
  - IDIOPATHIC THROMBOCYTOPENIC PURPURA [None]
  - SWELLING FACE [None]
  - SWOLLEN TONGUE [None]
